FAERS Safety Report 8318729-1 (Version None)
Quarter: 2012Q2

REPORT INFORMATION
  Report Type: 
  Country: None (occurrence: None)
  Receive Date: 20120427
  Receipt Date: 20120417
  Transmission Date: 20120825
  Serious: Yes (Hospitalization)
  Sender: FDA-Public Use
  Company Number: CA-JNJFOC-20120408531

PATIENT
  Sex: Male
  Weight: 160 kg

DRUGS (2)
  1. REMICADE [Suspect]
     Indication: CROHN'S DISEASE
     Dates: start: 20110101, end: 20110801
  2. PURINETHOL [Concomitant]

REACTIONS (1)
  - HEPATIC NEOPLASM MALIGNANT [None]
